FAERS Safety Report 5595811-3 (Version None)
Quarter: 2008Q1

REPORT INFORMATION
  Report Type: 
  Country: None (occurrence: None)
  Receive Date: 20080118
  Receipt Date: 20071220
  Transmission Date: 20080703
  Serious: Yes (Hospitalization)
  Sender: FDA-Public Use
  Company Number: NL-PURDUE-GBR_2007_0003563

PATIENT
  Age: 39 Year
  Sex: Female
  Weight: 68 kg

DRUGS (6)
  1. OXYNORM CAPSULES [Suspect]
     Indication: PAIN
     Dosage: MAX 5 CAPSULES OF 5MG, PRN
     Route: 048
     Dates: start: 20071118, end: 20071121
  2. OXYNORM CAPSULES [Suspect]
     Dosage: 10 MG, UNK
     Route: 048
  3. LEVONORGESTREL AND ETHINYL ESTRADIOL [Concomitant]
     Dosage: 1 DF, DAILY
     Route: 065
     Dates: start: 20071010
  4. THYRAX [Concomitant]
     Indication: DRUG USE FOR UNKNOWN INDICATION
     Dosage: 75 MCG, DAILY
     Route: 065
  5. CLORAZEPINIC ACID [Concomitant]
     Indication: DRUG USE FOR UNKNOWN INDICATION
     Dosage: 5 MG, UNK
     Route: 065
     Dates: start: 20071029, end: 20071113
  6. XYZAL [Concomitant]
     Indication: DRUG USE FOR UNKNOWN INDICATION
     Dosage: 5 MG, DAILY
     Route: 065

REACTIONS (2)
  - NAUSEA [None]
  - SKIN REACTION [None]
